FAERS Safety Report 6472365-0 (Version None)
Quarter: 2009Q4

REPORT INFORMATION
  Report Type: 
  Country: None (occurrence: None)
  Receive Date: 20091125
  Receipt Date: 20091113
  Transmission Date: 20100525
  Serious: Yes (Hospitalization)
  Sender: FDA-Public Use
  Company Number: 2009SP036456

PATIENT
  Age: 93 Year
  Sex: Female

DRUGS (8)
  1. MIRTAZAPINE [Suspect]
     Indication: DRUG USE FOR UNKNOWN INDICATION
     Dosage: 15 MG; QPM; PO
     Route: 048
     Dates: start: 20091001, end: 20091010
  2. ALUMINUM HYDROXIDE AND MAGNESIUM TRISILICATE [Concomitant]
  3. PARACETAMOL [Concomitant]
  4. NEXIUM [Concomitant]
  5. PREVISCAN [Concomitant]
  6. DETENSIEL [Concomitant]
  7. ATARAX [Concomitant]
  8. PROCTOLOG /02805401/ [Concomitant]

REACTIONS (3)
  - DIARRHOEA [None]
  - HYPOKALAEMIA [None]
  - HYPONATRAEMIA [None]
